FAERS Safety Report 12901567 (Version 2)
Quarter: 2016Q4

REPORT INFORMATION
  Report Type: Spontaneous
  Country: US (occurrence: US)
  Receive Date: 20161102
  Receipt Date: 20161102
  Transmission Date: 20170207
  Serious: Yes (Hospitalization, Other)
  Sender: FDA-Public Use
  Company Number: US-CIPLA LTD.-2016US20086

PATIENT

DRUGS (15)
  1. SERTRALINE [Suspect]
     Active Substance: SERTRALINE HYDROCHLORIDE
     Indication: DEPRESSION
     Dosage: 50 MG, QD
     Route: 065
  2. MARIJUANA [Suspect]
     Active Substance: CANNABIS SATIVA SUBSP. INDICA TOP
     Dosage: 1 BLUNT
     Route: 065
  3. ARIPIPRAZOLE. [Interacting]
     Active Substance: ARIPIPRAZOLE
     Indication: DEPRESSION
     Dosage: 5 MG, EVERY HOUR
     Route: 048
  4. ARIPIPRAZOLE. [Interacting]
     Active Substance: ARIPIPRAZOLE
     Dosage: 10 MG, UNK
     Route: 065
  5. COCAINE [Suspect]
     Active Substance: COCAINE
     Dosage: 1 G, UNK
     Route: 065
  6. ARIPIPRAZOLE. [Interacting]
     Active Substance: ARIPIPRAZOLE
     Dosage: 15 MG, ON HOSPITAL DAY 3
     Route: 065
  7. ALPRAZOLAM. [Suspect]
     Active Substance: ALPRAZOLAM
     Dosage: 2 MG, FOUR TABLETS
     Route: 065
  8. LITHIUM. [Suspect]
     Active Substance: LITHIUM
     Dosage: 450 MG, UNK
     Route: 048
  9. LITHIUM. [Suspect]
     Active Substance: LITHIUM
     Dosage: 450 MG, EVERY MORNING
     Route: 048
  10. SERTRALINE [Interacting]
     Active Substance: SERTRALINE HYDROCHLORIDE
     Dosage: UNK AT EVENING
     Route: 065
  11. SERTRALINE [Interacting]
     Active Substance: SERTRALINE HYDROCHLORIDE
     Dosage: 200 MG, EVERY HOUR
     Route: 048
  12. BENZTROPINE [Suspect]
     Active Substance: BENZTROPINE
     Dosage: 1 MG, SINGLE DOSE
     Route: 065
  13. ASPIRIN. [Suspect]
     Active Substance: ASPIRIN
     Dosage: UNK, 70 TABLETS
     Route: 065
  14. SERTRALINE [Interacting]
     Active Substance: SERTRALINE HYDROCHLORIDE
     Dosage: 100 MG, UNK (~AFTER 1 WEEK) AT MORNING
     Route: 048
  15. BEER [Suspect]
     Active Substance: ALCOHOL
     Dosage: 24 OZ BEER, UNK
     Route: 065

REACTIONS (10)
  - Muscle contractions involuntary [Unknown]
  - Drug interaction [Unknown]
  - Vision blurred [Unknown]
  - Hospitalisation [Unknown]
  - Diplopia [Unknown]
  - Suicide attempt [Unknown]
  - Overdose [Unknown]
  - Anxiety [Unknown]
  - Suicidal ideation [Unknown]
  - Extrapyramidal disorder [Recovered/Resolved]
